FAERS Safety Report 9034229 (Version 1)
Quarter: 2013Q1

REPORT INFORMATION
  Report Type: Spontaneous
  Country: GB (occurrence: GB)
  Receive Date: 20130128
  Receipt Date: 20130128
  Transmission Date: 20140127
  Serious: Yes (Other)
  Sender: FDA-Public Use
  Company Number: GB-AMGEN-GBRSP2011006575

PATIENT
  Age: 54 Year
  Sex: Male

DRUGS (2)
  1. NPLATE [Suspect]
     Indication: IDIOPATHIC THROMBOCYTOPENIC PURPURA
     Dosage: 1 MUG/KG, UNK
     Dates: start: 20100118
  2. NPLATE [Suspect]
     Dosage: 6 MUG/KG, UNK

REACTIONS (2)
  - Drug ineffective [Unknown]
  - Haemorrhage [Unknown]
